FAERS Safety Report 9725258 (Version 2)
Quarter: 2014Q1

REPORT INFORMATION
  Report Type: Spontaneous
  Country: US (occurrence: US)
  Receive Date: 20131203
  Receipt Date: 20140103
  Transmission Date: 20141002
  Serious: Yes (Other)
  Sender: FDA-Public Use
  Company Number: US-AMGEN-USASP2013083524

PATIENT
  Age: 71 Year
  Sex: Female
  Weight: 50.79 kg

DRUGS (7)
  1. PROLIA [Suspect]
     Indication: OSTEOPOROSIS POSTMENOPAUSAL
     Dosage: 60 MG/ML, Q6MO
     Route: 058
     Dates: start: 20130409, end: 20131022
  2. VITAMIN C                          /00008001/ [Concomitant]
  3. VITAMIN B12                        /00056201/ [Concomitant]
  4. CALCIUM PLUS D3 [Concomitant]
  5. ZANTAC [Concomitant]
     Dosage: 300 MG, UNK
  6. PREVACID [Concomitant]
     Dosage: 30 MG, QD
  7. DIOVAN HCT [Concomitant]
     Dosage: UNK UNK, QD

REACTIONS (6)
  - Urinary tract infection [Recovered/Resolved]
  - Salivary gland enlargement [Unknown]
  - Influenza like illness [Unknown]
  - Local swelling [Recovering/Resolving]
  - Pain in jaw [Unknown]
  - Mass [Unknown]
